FAERS Safety Report 5215076-1 (Version None)
Quarter: 2007Q1

REPORT INFORMATION
  Report Type: 
  Country: None (occurrence: None)
  Receive Date: 20070122
  Receipt Date: 20061211
  Transmission Date: 20070707
  Serious: Yes (Hospitalization, Other)
  Sender: FDA-Public Use
  Company Number: US-PFIZER INC-2006153589

PATIENT
  Sex: Female
  Weight: 122.5 kg

DRUGS (2)
  1. CELEBREX [Suspect]
     Indication: ARTHRITIS
  2. CELEBREX [Suspect]
     Indication: JOINT INJURY

REACTIONS (4)
  - ACUTE MYOCARDIAL INFARCTION [None]
  - AMNESIA [None]
  - DYSPNOEA [None]
  - HEART RATE IRREGULAR [None]
